FAERS Safety Report 10145494 (Version 3)
Quarter: 2014Q2

REPORT INFORMATION
  Report Type: Spontaneous
  Country: AT (occurrence: AT)
  Receive Date: 20140501
  Receipt Date: 20140619
  Transmission Date: 20141212
  Serious: Yes (Other)
  Sender: FDA-Public Use
  Company Number: AT-JNJFOC-20140416892

PATIENT
  Sex: Male
  Weight: 96 kg

DRUGS (7)
  1. STELARA [Suspect]
     Indication: PSORIASIS
     Route: 058
     Dates: start: 20090507
  2. STELARA [Suspect]
     Indication: PSORIASIS
     Route: 058
     Dates: start: 20100526
  3. NORVASC [Concomitant]
     Route: 048
     Dates: start: 2008
  4. GLUCOPHAGE [Concomitant]
     Route: 065
     Dates: start: 2008
  5. ADALAT [Concomitant]
     Route: 065
     Dates: start: 2008
  6. DIAMICRON [Concomitant]
     Route: 065
     Dates: start: 2008
  7. VIMOVO [Concomitant]
     Dosage: 500 MG/200 MG.
     Route: 065
     Dates: start: 20140402

REACTIONS (2)
  - Psoriatic arthropathy [Unknown]
  - Drug ineffective [Unknown]
